FAERS Safety Report 23442751 (Version 1)
Quarter: 2024Q1

REPORT INFORMATION
  Report Type: Spontaneous
  Country: FR (occurrence: None)
  Receive Date: 20240125
  Receipt Date: 20240125
  Transmission Date: 20240410
  Serious: Yes (Hospitalization)
  Sender: FDA-Public Use
  Company Number: 2024A013220

PATIENT
  Age: 71 Year
  Sex: Female
  Weight: 55 kg

DRUGS (1)
  1. CALQUENCE [Suspect]
     Active Substance: ACALABRUTINIB
     Indication: Chronic lymphocytic leukaemia
     Route: 048
     Dates: start: 20201110, end: 20231103

REACTIONS (2)
  - Hepatitis B virus test positive [Not Recovered/Not Resolved]
  - Drug monitoring procedure incorrectly performed [Not Recovered/Not Resolved]

NARRATIVE: CASE EVENT DATE: 20201110
